FAERS Safety Report 6937579-1 (Version None)
Quarter: 2010Q3

REPORT INFORMATION
  Report Type: 
  Country: None (occurrence: None)
  Receive Date: 20100823
  Receipt Date: 20100810
  Transmission Date: 20110219
  Serious: Yes (Hospitalization)
  Sender: FDA-Public Use
  Company Number: ES-ELI_LILLY_AND_COMPANY-ES201008003243

PATIENT
  Sex: Female

DRUGS (8)
  1. FORTEO [Suspect]
     Indication: OSTEOPOROSIS
     Dosage: 20 UG, DAILY (1/D)
     Route: 058
     Dates: start: 20100203, end: 20100807
  2. ENALAPRIL MALEATE [Concomitant]
     Indication: HYPERTENSION
     Dosage: UNK, UNKNOWN
     Route: 048
  3. AMLODIPINO                         /00972401/ [Concomitant]
     Indication: HYPERTENSION
     Dosage: UNK, UNKNOWN
     Route: 048
  4. ESERTIA [Concomitant]
     Indication: DEPRESSION
     Dosage: UNK, UNKNOWN
     Route: 048
  5. METFORMIN [Concomitant]
     Dosage: UNK, UNKNOWN
     Route: 048
  6. ENANTON [Concomitant]
     Indication: ANTIINFLAMMATORY THERAPY
     Dosage: UNK, 2/D
     Route: 048
  7. IBERCAL [Concomitant]
     Dosage: 2 SACHETS A DAY, OTHER
     Route: 048
  8. LYRICA [Concomitant]
     Dosage: UNK, 2/D
     Route: 048

REACTIONS (5)
  - ANURIA [None]
  - BRADYCARDIA [None]
  - HYPERKALAEMIA [None]
  - LUNG INFECTION [None]
  - RENAL FAILURE [None]
